FAERS Safety Report 20512762 (Version 1)
Quarter: 2022Q1

REPORT INFORMATION
  Report Type: Report from Study
  Country: US (occurrence: US)
  Receive Date: 20220224
  Receipt Date: 20220224
  Transmission Date: 20220423
  Serious: Yes (Other)
  Sender: FDA-Public Use
  Company Number: US-TEVA-767908USA

PATIENT
  Age: 63 Year
  Sex: Female

DRUGS (4)
  1. AUSTEDO [Suspect]
     Active Substance: DEUTETRABENAZINE
     Indication: Huntington^s disease
     Dosage: 72 MILLIGRAM DAILY;
     Route: 065
     Dates: start: 20170428
  2. AUSTEDO [Suspect]
     Active Substance: DEUTETRABENAZINE
     Dosage: 84 MILLIGRAM DAILY; TWO 9MG + TWO 12MG TABLETS TWICE PER DAY
     Route: 065
     Dates: start: 20170613
  3. AUSTEDO [Suspect]
     Active Substance: DEUTETRABENAZINE
     Dosage: 84 MILLIGRAM DAILY; CURRENTLY, MAINTAINING AT 42MG (THREE 12MG + ONE 6MG TABLETS) TWICE PER DAY
     Route: 065
  4. AUSTEDO [Suspect]
     Active Substance: DEUTETRABENAZINE
     Dosage: 96 MILLIGRAM DAILY; 48MG (FOUR 12MG TABLETS) TWICE PER DAY
     Route: 065
     Dates: start: 20170730

REACTIONS (5)
  - Huntington^s disease [Not Recovered/Not Resolved]
  - Disease progression [Not Recovered/Not Resolved]
  - Weight decreased [Recovered/Resolved]
  - Product use issue [Unknown]
  - Drug ineffective [Unknown]

NARRATIVE: CASE EVENT DATE: 20170101
